FAERS Safety Report 4559104-5 (Version None)
Quarter: 2005Q1

REPORT INFORMATION
  Report Type: 
  Country: None (occurrence: None)
  Receive Date: 20050119
  Receipt Date: 20050111
  Transmission Date: 20050727
  Serious: Yes (Life-Threatening, Hospitalization, Disabling)
  Sender: FDA-Public Use
  Company Number: 2003EU005039

PATIENT

DRUGS (4)
  1. FK506              (TACROLIMUS) [Suspect]
     Indication: RENAL TRANSPLANT
  2. SIROLIMUS             (SIROLIMUS) [Suspect]
  3. PREDNISONE [Concomitant]
  4. ATG              (ANTILYMPHOCYTE IMMUNOGLOBULIN (HORSE)) [Concomitant]

REACTIONS (4)
  - COMPLICATIONS OF TRANSPLANTED KIDNEY [None]
  - HAEMODIALYSIS [None]
  - RENAL VESSEL DISORDER [None]
  - SURGICAL PROCEDURE REPEATED [None]
